FAERS Safety Report 14607232 (Version 1)
Quarter: 2018Q1

REPORT INFORMATION
  Report Type: Spontaneous
  Country: US (occurrence: US)
  Receive Date: 20180306
  Receipt Date: 20180306
  Transmission Date: 20180509
  Serious: Yes (Hospitalization)
  Sender: FDA-Public Use
  Company Number: None

PATIENT
  Age: 59 Year
  Sex: Male
  Weight: 86.5 kg

DRUGS (11)
  1. PEPCID [Concomitant]
     Active Substance: FAMOTIDINE
  2. TOPROL XL [Concomitant]
     Active Substance: METOPROLOL SUCCINATE
  3. PLAVIX [Concomitant]
     Active Substance: CLOPIDOGREL BISULFATE
  4. ASA [Concomitant]
     Active Substance: ASPIRIN
  5. NTG [Concomitant]
     Active Substance: NITROGLYCERIN
  6. PROTONIX [Concomitant]
     Active Substance: PANTOPRAZOLE SODIUM
  7. AMLODIPINE [Concomitant]
     Active Substance: AMLODIPINE BESYLATE
  8. TRADJENTA [Concomitant]
     Active Substance: LINAGLIPTIN
  9. MORPHINE [Suspect]
     Active Substance: MORPHINE
     Indication: CHEST PAIN
     Dosage: 2MG Q4HRS PRN IV RECENT
     Route: 042
  10. LIPITOR [Concomitant]
     Active Substance: ATORVASTATIN CALCIUM
  11. IMDUR [Concomitant]
     Active Substance: ISOSORBIDE MONONITRATE

REACTIONS (4)
  - Disorientation [None]
  - Therapeutic response decreased [None]
  - Unresponsive to stimuli [None]
  - Tearfulness [None]

NARRATIVE: CASE EVENT DATE: 20171120
